FAERS Safety Report 7984716 (Version 2)
Quarter: 2012Q4

REPORT INFORMATION
  Report Type: 
  Country: NZ (occurrence: NZ)
  Receive Date: 20110609
  Receipt Date: 20121024
  Transmission Date: 20130627
  Serious: Yes (Death, Other)
  Sender: FDA-Public Use
  Company Number: PHHO2007NZ04590

PATIENT
  Age: 76 Year
  Sex: Female

DRUGS (15)
  1. CLOZARIL (CLOZAPINE) [Suspect]
     Indication: SCHIZOPHRENIA
     Dosage: 125 mg
     Route: 048
     Dates: start: 20010412, end: 20061205
  2. CLOZARIL (CLOZAPINE) [Suspect]
     Dosage: 187.5 mg (Nocte)
  3. THYROXINE [Concomitant]
     Dosage: 0.1 mg
  4. ZOPICLONE [Concomitant]
     Dosage: 7.5 mg (Tue, Thus and Sat)
  5. MULTIVITE SIX [Concomitant]
  6. CALCIUM CARBONATE [Concomitant]
     Dosage: 500 mg
  7. FOLIC ACID [Concomitant]
     Indication: CONSTIPATION
     Dosage: 5 mg
  8. LACTULOSE [Concomitant]
     Indication: CONSTIPATION
     Dosage: 30 ml
  9. OMEPRAZOLE [Concomitant]
     Dosage: 20 mg (mane)
  10. LITHIUM CARBONATE [Concomitant]
     Dosage: 625 mg (nocte)
     Route: 065
  11. QUININE SULPHATE [Concomitant]
     Dosage: 300 mg (nocte)
  12. SENOKOT [Concomitant]
  13. DIAZEPAM [Concomitant]
     Dosage: 2 mg (nocte)
  14. CECLOR [Concomitant]
     Dosage: 500 mg
  15. ASPECTON [Concomitant]
     Dosage: 75 mg

REACTIONS (15)
  - Breast cancer metastatic [Fatal]
  - Fall [Unknown]
  - Infection [Unknown]
  - Mania [Unknown]
  - Abnormal behaviour [Unknown]
  - Elevated mood [Unknown]
  - Impulsive behaviour [Unknown]
  - Depression [Unknown]
  - Delusion [Unknown]
  - Irritability [Unknown]
  - Asthenia [Unknown]
  - Malaise [Unknown]
  - Contusion [Unknown]
  - Restlessness [Unknown]
  - Neutrophil count increased [Unknown]
